FAERS Safety Report 13834012 (Version 2)
Quarter: 2017Q3

REPORT INFORMATION
  Report Type: Spontaneous
  Country: MX (occurrence: MX)
  Receive Date: 20170804
  Receipt Date: 20170905
  Transmission Date: 20171127
  Serious: Yes (Death, Hospitalization, Other)
  Sender: FDA-Public Use
  Company Number: MX-009507513-1707MEX007404

PATIENT

DRUGS (1)
  1. KEYTRUDA [Suspect]
     Active Substance: PEMBROLIZUMAB
     Indication: NON-SMALL CELL LUNG CANCER
     Dosage: 2 MG/KG, EVERY THREE WEEKS
     Route: 042
     Dates: start: 201706, end: 201706

REACTIONS (2)
  - Pneumonia [Fatal]
  - Adverse event [Fatal]

NARRATIVE: CASE EVENT DATE: 2017
